FAERS Safety Report 8684987 (Version 4)
Quarter: 2012Q4

REPORT INFORMATION
  Report Type: Report from Study
  Country: DE (occurrence: DE)
  Receive Date: 20120726
  Receipt Date: 20121121
  Transmission Date: 20130627
  Serious: Yes (Hospitalization)
  Sender: FDA-Public Use
  Company Number: DE-ABBOTT-12P-062-0956878-01

PATIENT
  Age: 15 Year
  Sex: Female

DRUGS (3)
  1. HUMIRA [Suspect]
     Indication: JUVENILE ARTHRITIS
     Route: 058
     Dates: start: 20101025
  2. ARAVA [Concomitant]
     Indication: JUVENILE ARTHRITIS
     Dates: start: 20101025, end: 20110724
  3. YASMINE [Concomitant]
     Indication: CONTRACEPTION
     Dates: start: 201008

REACTIONS (1)
  - Joint injury [Recovered/Resolved]
